FAERS Safety Report 5345095-6 (Version None)
Quarter: 2007Q2

REPORT INFORMATION
  Report Type: 
  Country: None (occurrence: None)
  Receive Date: 20070420
  Receipt Date: 20060503
  Transmission Date: 20071010
  Serious: Yes (Other)
  Sender: FDA-Public Use
  Company Number: 145602USA

PATIENT
  Age: 70 Year
  Sex: Male

DRUGS (8)
  1. PAMIDRONATE DISODIUM [Suspect]
     Indication: MULTIPLE MYELOMA
     Dosage: (90 MG, ONCE A MONTH)
     Dates: start: 20040128, end: 20050603
  2. ZOMETA [Suspect]
  3. SIMVASTATIN [Concomitant]
  4. POTASSIUM ACETATE [Concomitant]
  5. LANSOPRAZOLE [Concomitant]
  6. CLOPIDOGREL BISULFATE [Concomitant]
  7. HYZAAR [Concomitant]
  8. ALLOPURINOL [Concomitant]

REACTIONS (1)
  - OSTEONECROSIS [None]
